FAERS Safety Report 23270303 (Version 1)
Quarter: 2023Q4

REPORT INFORMATION
  Report Type: Spontaneous
  Country: CA (occurrence: CA)
  Receive Date: 20231207
  Receipt Date: 20231207
  Transmission Date: 20240110
  Serious: Yes (Life-Threatening, Disabling)
  Sender: FDA-Public Use
  Company Number: CA-BoehringerIngelheim-2023-BI-276909

PATIENT
  Age: 34 Year
  Sex: Female

DRUGS (4)
  1. JENTADUETO [Suspect]
     Active Substance: LINAGLIPTIN\METFORMIN HYDROCHLORIDE
     Indication: Diabetes mellitus
     Dosage: DOSAGE FORMS: 1
     Route: 048
  2. OMEGA-3 ACIDS [Concomitant]
     Active Substance: OMEGA-3 FATTY ACIDS
     Indication: Product used for unknown indication
  3. VITAMIN D [Concomitant]
     Active Substance: VITAMIN D NOS
     Indication: Product used for unknown indication
  4. CURCUMIN/CURCUMA LONGA RHIZOME [Concomitant]
     Indication: Product used for unknown indication

REACTIONS (6)
  - Hypersomnia [Recovering/Resolving]
  - Suicidal ideation [Recovering/Resolving]
  - Executive dysfunction [Recovering/Resolving]
  - Apathy [Recovering/Resolving]
  - Depressive symptom [Recovering/Resolving]
  - Fatigue [Recovering/Resolving]
